FAERS Safety Report 9426702 (Version 1)
Quarter: 2013Q3

REPORT INFORMATION
  Report Type: Spontaneous
  Country: US (occurrence: US)
  Receive Date: 20130730
  Receipt Date: 20130730
  Transmission Date: 20140515
  Serious: No
  Sender: FDA-Public Use
  Company Number: US-SANOFI-AVENTIS-2012SA071619

PATIENT
  Sex: Female

DRUGS (1)
  1. ZOLPIDEM TARTRATE [Suspect]
     Indication: MIDDLE INSOMNIA
     Route: 048
     Dates: start: 2010

REACTIONS (4)
  - Memory impairment [Not Recovered/Not Resolved]
  - Abnormal sleep-related event [Recovered/Resolved]
  - Amnesia [Recovered/Resolved]
  - Incorrect drug administration duration [Unknown]
